FAERS Safety Report 5578831-4 (Version None)
Quarter: 2007Q4

REPORT INFORMATION
  Report Type: 
  Country: None (occurrence: None)
  Receive Date: 20071228
  Receipt Date: 20071220
  Transmission Date: 20080405
  Serious: No
  Sender: FDA-Public Use
  Company Number: OSCN-PR-0711S-0475

PATIENT
  Age: 61 Year
  Sex: Male

DRUGS (2)
  1. OMNISCAN [Suspect]
     Indication: CONCUSSION
     Dosage: 40 ML, SINGLE DOSE, I.V.
     Route: 042
     Dates: start: 20060901, end: 20060901
  2. OMNISCAN [Suspect]
     Indication: METASTASES TO CENTRAL NERVOUS SYSTEM
     Dosage: 40 ML, SINGLE DOSE, I.V.
     Route: 042
     Dates: start: 20060901, end: 20060901

REACTIONS (9)
  - ARTHRALGIA [None]
  - EXPOSURE TO TOXIC AGENT [None]
  - MUSCLE CONTRACTURE [None]
  - MUSCULOSKELETAL STIFFNESS [None]
  - MYALGIA [None]
  - OEDEMA PERIPHERAL [None]
  - RASH PAPULAR [None]
  - RASH PRURITIC [None]
  - SKIN LESION [None]
